FAERS Safety Report 18659021 (Version 2)
Quarter: 2021Q4

REPORT INFORMATION
  Report Type: Report from Study
  Country: US (occurrence: US)
  Receive Date: 20201224
  Receipt Date: 20211018
  Transmission Date: 20220303
  Serious: Yes (Death, Other)
  Sender: FDA-Public Use
  Company Number: US-ACADIA PHARMACEUTICALS INC.-ACA-2020-PIM-003853

PATIENT
  Age: 77 Year
  Sex: Male

DRUGS (24)
  1. NUPLAZID [Suspect]
     Active Substance: PIMAVANSERIN TARTRATE
     Indication: Parkinson^s disease psychosis
     Dosage: 34 MILLIGRAM, QD
     Route: 048
     Dates: start: 20201123, end: 20211001
  2. NUPLAZID [Suspect]
     Active Substance: PIMAVANSERIN TARTRATE
     Indication: Hallucination
  3. NUPLAZID [Suspect]
     Active Substance: PIMAVANSERIN TARTRATE
     Indication: Delusion
  4. ARICEPT [Concomitant]
     Active Substance: DONEPEZIL HYDROCHLORIDE
     Dosage: UNK
     Dates: start: 201912
  5. TRAZODONE [Concomitant]
     Active Substance: TRAZODONE HYDROCHLORIDE
     Dosage: UNK
     Dates: start: 201912
  6. PREDNISONE [Concomitant]
     Active Substance: PREDNISONE
  7. MEMANTINE [Concomitant]
     Active Substance: MEMANTINE
     Dosage: UNK
     Dates: start: 201912
  8. SERTRALINE [Concomitant]
     Active Substance: SERTRALINE HYDROCHLORIDE
     Dosage: UNK
     Dates: start: 201912
  9. ASPIRIN [Concomitant]
     Active Substance: ASPIRIN
  10. ZOLOFT [Concomitant]
     Active Substance: SERTRALINE HYDROCHLORIDE
  11. CRESTOR [Concomitant]
     Active Substance: ROSUVASTATIN CALCIUM
  12. ALBUTEROL SULFATE [Concomitant]
     Active Substance: ALBUTEROL SULFATE
  13. ENTOCORT [Concomitant]
     Active Substance: BUDESONIDE
  14. ASPIRIN [Concomitant]
     Active Substance: ASPIRIN
  15. TUSSIN [BUTAMIRATE CITRATE] [Concomitant]
  16. AZITHROMYCIN ANHYDROUS [Concomitant]
     Active Substance: AZITHROMYCIN ANHYDROUS
  17. AIRBORNE [Concomitant]
     Active Substance: HERBALS\MINERALS\VITAMINS
  18. MELATONIN [Concomitant]
     Active Substance: MELATONIN
  19. ZETIA [Concomitant]
     Active Substance: EZETIMIBE
  20. TOPROL XL [Concomitant]
     Active Substance: METOPROLOL SUCCINATE
  21. PEPCID [Concomitant]
     Active Substance: FAMOTIDINE
  22. METFORMIN [Concomitant]
     Active Substance: METFORMIN HYDROCHLORIDE
  23. PERFOROMIST [Concomitant]
     Active Substance: FORMOTEROL FUMARATE DIHYDRATE
  24. VITAMINS NOS [Concomitant]
     Active Substance: VITAMINS

REACTIONS (4)
  - Death [Recovered/Resolved]
  - Heart rate decreased [Recovered/Resolved]
  - Balance disorder [Recovered/Resolved]
  - Somnolence [Recovered/Resolved]

NARRATIVE: CASE EVENT DATE: 20201101
